FAERS Safety Report 19956094 (Version 1)
Quarter: 2021Q4

REPORT INFORMATION
  Report Type: Spontaneous
  Country: CA (occurrence: CA)
  Receive Date: 20211014
  Receipt Date: 20211014
  Transmission Date: 20220303
  Serious: Yes (Hospitalization)
  Sender: FDA-Public Use
  Company Number: CA-ROCHE-2932122

PATIENT
  Sex: Female

DRUGS (3)
  1. RITUXIMAB [Suspect]
     Active Substance: RITUXIMAB
     Indication: Human herpes virus 8 test positive
     Route: 042
  2. ETOPOSIDE [Concomitant]
     Active Substance: ETOPOSIDE
     Route: 065
  3. PREDNISONE [Concomitant]
     Active Substance: PREDNISONE

REACTIONS (7)
  - Acute myocardial infarction [Unknown]
  - Castleman^s disease [Unknown]
  - Cognitive disorder [Unknown]
  - Delirium [Unknown]
  - Microangiopathy [Unknown]
  - Myocardial ischaemia [Unknown]
  - Thrombotic thrombocytopenic purpura [Unknown]
